FAERS Safety Report 11514075 (Version 1)
Quarter: 2015Q3

REPORT INFORMATION
  Report Type: Spontaneous
  Country: US (occurrence: US)
  Receive Date: 20150903
  Receipt Date: 20150903
  Transmission Date: 20151125
  Serious: No
  Sender: FDA-Public Use
  Company Number: US-ELI_LILLY_AND_COMPANY-US201211003239

PATIENT
  Age: 42 Year
  Sex: Female

DRUGS (4)
  1. CYMBALTA [Suspect]
     Active Substance: DULOXETINE HYDROCHLORIDE
     Dosage: 60 MG, QD
     Route: 048
     Dates: end: 20121101
  2. CYMBALTA [Suspect]
     Active Substance: DULOXETINE HYDROCHLORIDE
     Indication: DEPRESSION
     Dosage: 30 MG, QD
     Route: 048
  3. DEXEDRINE [Concomitant]
     Active Substance: DEXTROAMPHETAMINE SULFATE
     Dosage: 10 MG, UNK
     Dates: start: 20121025
  4. TRAMADOL. [Concomitant]
     Active Substance: TRAMADOL
     Indication: PAIN

REACTIONS (15)
  - Flat affect [Recovered/Resolved]
  - Irritability [Unknown]
  - Dizziness [Unknown]
  - Confusional state [Unknown]
  - Cough [Unknown]
  - Drug withdrawal syndrome [Recovering/Resolving]
  - Influenza like illness [Unknown]
  - Depressed mood [Unknown]
  - Headache [Unknown]
  - Fatigue [Recovering/Resolving]
  - Oropharyngeal pain [Unknown]
  - Abdominal pain upper [Unknown]
  - Exfoliative rash [Recovered/Resolved]
  - Somnolence [Recovering/Resolving]
  - Disturbance in attention [Unknown]
